FAERS Safety Report 5078463-0 (Version None)
Quarter: 2006Q3

REPORT INFORMATION
  Report Type: 
  Country: None (occurrence: None)
  Receive Date: 20060808
  Receipt Date: 20060726
  Transmission Date: 20061208
  Serious: Yes (Death, Hospitalization)
  Sender: FDA-Public Use
  Company Number: A-CH2006-12592

PATIENT
  Age: 80 Year
  Sex: Male

DRUGS (2)
  1. TRACLEER [Suspect]
     Indication: PULMONARY HYPERTENSION
     Dosage: 125 MG, BID, ORAL
     Route: 048
  2. OXYGEN (OXYGEN) [Concomitant]

REACTIONS (9)
  - ANAEMIA [None]
  - ASTHENIA [None]
  - CHRONIC RESPIRATORY FAILURE [None]
  - CONDITION AGGRAVATED [None]
  - HYPOTENSION [None]
  - LEFT VENTRICULAR FAILURE [None]
  - NUTRITIONAL CONDITION ABNORMAL [None]
  - OEDEMA PERIPHERAL [None]
  - SKIN ULCER [None]
